FAERS Safety Report 7580108-2 (Version None)
Quarter: 2011Q2

REPORT INFORMATION
  Report Type: 
  Country: None (occurrence: None)
  Receive Date: 20110629
  Receipt Date: 20110617
  Transmission Date: 20111010
  Serious: Yes (Hospitalization, Disabling, Other)
  Sender: FDA-Public Use
  Company Number: US-ELI_LILLY_AND_COMPANY-US201106006528

PATIENT
  Age: 60 Year
  Sex: Female

DRUGS (3)
  1. METFORMIN HCL [Concomitant]
     Dosage: UNK
  2. CYMBALTA [Suspect]
     Dosage: UNK, UNKNOWN
     Dates: start: 20090101, end: 20090101
  3. CYMBALTA [Suspect]
     Indication: FIBROMYALGIA
     Dosage: 60 MG, QD
     Dates: start: 20070101, end: 20090101

REACTIONS (10)
  - AMNESIA [None]
  - SHOULDER OPERATION [None]
  - KNEE OPERATION [None]
  - LOSS OF CONSCIOUSNESS [None]
  - FALL [None]
  - HALLUCINATION [None]
  - DRUG INEFFECTIVE [None]
  - DISABILITY [None]
  - GLUCOSE TOLERANCE IMPAIRED [None]
  - NEURALGIA [None]
